FAERS Safety Report 24322542 (Version 1)
Quarter: 2024Q3

REPORT INFORMATION
  Report Type: Spontaneous
  Country: US (occurrence: US)
  Receive Date: 20240916
  Receipt Date: 20240916
  Transmission Date: 20241017
  Serious: No
  Sender: AMNEAL
  Company Number: US-AMNEAL PHARMACEUTICALS-2023-AMRX-03297

PATIENT
  Age: 61 Year
  Sex: Male

DRUGS (2)
  1. METFORMIN HYDROCHLORIDE [Suspect]
     Active Substance: METFORMIN HYDROCHLORIDE
     Indication: Product used for unknown indication
     Dosage: UNK
     Route: 065
  2. LENVIMA [Suspect]
     Active Substance: LENVATINIB
     Indication: Renal cell carcinoma
     Dosage: 20 MG
     Route: 065
     Dates: start: 20230619

REACTIONS (8)
  - Abdominal distension [Unknown]
  - Back pain [Unknown]
  - Dry mouth [Unknown]
  - Fatigue [Unknown]
  - Hepatic enzyme increased [Unknown]
  - Monocyte percentage increased [Unknown]
  - Osteoporosis [Unknown]
  - Abdominal discomfort [Unknown]

NARRATIVE: CASE EVENT DATE: 20230908
